FAERS Safety Report 8952100 (Version 2)
Quarter: 2013Q1

REPORT INFORMATION
  Report Type: Spontaneous
  Country: US (occurrence: US)
  Receive Date: 20121204
  Receipt Date: 20130102
  Transmission Date: 20140127
  Serious: No
  Sender: FDA-Public Use
  Company Number: US-AMGEN-USASP2012070718

PATIENT
  Age: 73 Year
  Sex: Female
  Weight: 73.02 kg

DRUGS (6)
  1. ENBREL [Suspect]
     Indication: PSORIASIS
     Dosage: 50 MG, QWK
     Dates: start: 20120906
  2. ENBREL [Suspect]
     Indication: PSORIATIC ARTHROPATHY
  3. PREDNISONE [Concomitant]
     Dosage: 2.5 MG, QID
     Route: 048
  4. GABAPENTINE [Concomitant]
     Dosage: 600 MG, BID
     Route: 048
  5. ACETRAM [Concomitant]
     Dosage: 50 MG, 1-2 TABS TID
     Route: 048
  6. FOLATE [Concomitant]
     Dosage: 1 MG, QID
     Route: 048

REACTIONS (2)
  - Psoriasis [Recovering/Resolving]
  - Sinusitis [Recovering/Resolving]
